FAERS Safety Report 12854991 (Version 5)
Quarter: 2021Q4

REPORT INFORMATION
  Report Type: Report from Study
  Country: JP (occurrence: None)
  Receive Date: 20161017
  Receipt Date: 20211112
  Transmission Date: 20220304
  Serious: Yes (Death, Other)
  Sender: FDA-Public Use
  Company Number: JP-EISAI MEDICAL RESEARCH-EC-2016-013514

PATIENT
  Age: 67 Year
  Sex: Female
  Weight: 38 kg

DRUGS (9)
  1. LENVIMA [Suspect]
     Active Substance: LENVATINIB
     Indication: Papillary thyroid cancer
     Route: 048
     Dates: start: 20150915, end: 20151101
  2. LENVIMA [Suspect]
     Active Substance: LENVATINIB
     Route: 048
     Dates: start: 20151102, end: 20151115
  3. LENVIMA [Suspect]
     Active Substance: LENVATINIB
     Route: 048
     Dates: start: 20151116, end: 20151227
  4. LENVIMA [Suspect]
     Active Substance: LENVATINIB
     Route: 048
     Dates: start: 20151228, end: 20160103
  5. LEVOTHYROXINE SODIUM [Concomitant]
     Active Substance: LEVOTHYROXINE SODIUM
  6. ALFACALCIDOL [Concomitant]
     Active Substance: ALFACALCIDOL
  7. PYRIDOXAL [Concomitant]
     Active Substance: PYRIDOXAL
  8. UREA [Concomitant]
     Active Substance: UREA
  9. DENOSUMAB [Concomitant]
     Active Substance: DENOSUMAB

REACTIONS (6)
  - Disseminated intravascular coagulation [Fatal]
  - Sepsis [Fatal]
  - Febrile neutropenia [Fatal]
  - Diarrhoea [Not Recovered/Not Resolved]
  - Platelet count decreased [Not Recovered/Not Resolved]
  - Hypothyroidism [Recovering/Resolving]

NARRATIVE: CASE EVENT DATE: 20150920
